FAERS Safety Report 16675117 (Version 2)
Quarter: 2019Q3

REPORT INFORMATION
  Report Type: Spontaneous
  Country: JP (occurrence: JP)
  Receive Date: 20190806
  Receipt Date: 20190808
  Transmission Date: 20191004
  Serious: Yes (Hospitalization)
  Sender: FDA-Public Use
  Company Number: JP-JNJFOC-20190803542

PATIENT
  Age: 80 Year
  Sex: Male

DRUGS (2)
  1. ONEDURO [Suspect]
     Active Substance: FENTANYL
     Route: 062
  2. ONEDURO [Suspect]
     Active Substance: FENTANYL
     Indication: PRODUCT USED FOR UNKNOWN INDICATION
     Dosage: FENTANYL:0.84MG
     Route: 062

REACTIONS (1)
  - Pain [Unknown]
